FAERS Safety Report 4791115-7 (Version None)
Quarter: 2005Q4

REPORT INFORMATION
  Report Type: 
  Country: None (occurrence: None)
  Receive Date: 20051007
  Receipt Date: 20050926
  Transmission Date: 20060501
  Serious: Yes (Death, Life-Threatening, Hospitalization)
  Sender: FDA-Public Use
  Company Number: FR-BRISTOL-MYERS SQUIBB COMPANY-13129507

PATIENT
  Age: 78 Year
  Sex: Female

DRUGS (6)
  1. GLUCOPHAGE [Suspect]
     Indication: DIABETES MELLITUS
     Route: 048
  2. LEVOTHYROX [Suspect]
     Indication: HYPOTHYROIDISM
     Route: 048
  3. CORDARONE [Suspect]
     Indication: ATRIAL FIBRILLATION
     Route: 048
  4. DIGOXINE NATIVELLE [Suspect]
     Indication: TACHYCARDIA
     Route: 048
  5. SINTROM [Suspect]
     Indication: ATRIAL FIBRILLATION
     Route: 048
  6. ALDALIX [Suspect]
     Indication: CARDIAC FAILURE
     Route: 048

REACTIONS (5)
  - HYPERKALAEMIA [None]
  - LACTIC ACIDOSIS [None]
  - MULTI-ORGAN FAILURE [None]
  - RENAL FAILURE ACUTE [None]
  - SHOCK [None]
